FAERS Safety Report 8008714-1 (Version None)
Quarter: 2011Q4

REPORT INFORMATION
  Report Type: 
  Country: None (occurrence: None)
  Receive Date: 20111227
  Receipt Date: 20111221
  Transmission Date: 20120403
  Serious: Yes (Death, Hospitalization)
  Sender: FDA-Public Use
  Company Number: BE-CELGENEUS-013-C5013-10061424

PATIENT
  Sex: Male
  Weight: 71 kg

DRUGS (14)
  1. LORAZEPAM [Concomitant]
     Route: 065
  2. LASIX [Concomitant]
     Route: 065
  3. LYSOMUCIL [Concomitant]
     Route: 065
  4. VELCADE [Suspect]
     Indication: MULTIPLE MYELOMA
     Route: 050
     Dates: start: 20100427, end: 20100610
  5. CORDARONE [Concomitant]
     Route: 065
  6. CALCIUM CARBONATE [Concomitant]
     Route: 065
  7. OMEPRAZOLE [Concomitant]
     Route: 065
  8. LENALIDOMIDE [Suspect]
     Indication: MULTIPLE MYELOMA
     Dosage: 5 MILLIGRAM
     Route: 048
     Dates: start: 20100427, end: 20100610
  9. MEDROL [Suspect]
     Indication: MULTIPLE MYELOMA
     Dosage: 230400 MILLIGRAM
     Route: 048
  10. ASPIRIN [Concomitant]
     Dosage: {=100MG
     Route: 065
  11. BEFACT [Concomitant]
     Route: 065
  12. LANITOP [Concomitant]
     Route: 065
  13. WHOLE BLOOD [Concomitant]
     Route: 065
  14. LAXOBERON [Concomitant]
     Route: 065

REACTIONS (2)
  - PULMONARY OEDEMA [None]
  - FAECALOMA [None]
